FAERS Safety Report 25129107 (Version 1)
Quarter: 2025Q1

REPORT INFORMATION
  Report Type: Spontaneous
  Country: US (occurrence: US)
  Receive Date: 20250327
  Receipt Date: 20250327
  Transmission Date: 20250409
  Serious: No
  Sender: ANI
  Company Number: US-ANIPHARMA-2024-US-062388

PATIENT
  Sex: Female
  Weight: 72.58 kg

DRUGS (1)
  1. CORTICOTROPIN [Suspect]
     Active Substance: CORTICOTROPIN
     Indication: Multiple sclerosis
     Route: 030

REACTIONS (3)
  - Liver disorder [Unknown]
  - Contraindicated product administered [Recovered/Resolved]
  - Accident at home [Unknown]
